FAERS Safety Report 9003867 (Version 1)
Quarter: 2013Q1

REPORT INFORMATION
  Report Type: Spontaneous
  Country: US (occurrence: US)
  Receive Date: 20130108
  Receipt Date: 20130108
  Transmission Date: 20140127
  Serious: No
  Sender: FDA-Public Use
  Company Number: US-GLAXOSMITHKLINE-A0998375A

PATIENT
  Age: 38 Year
  Sex: Male

DRUGS (5)
  1. LOVAZA [Suspect]
     Indication: BLOOD TRIGLYCERIDES INCREASED
     Dosage: 4CAP PER DAY
     Route: 048
     Dates: start: 20121008
  2. PLAVIX [Concomitant]
  3. CRESTOR [Concomitant]
  4. WELLBUTRIN [Concomitant]
  5. VITAMINS [Concomitant]

REACTIONS (3)
  - Dyspepsia [Not Recovered/Not Resolved]
  - Nausea [Unknown]
  - Gastrointestinal disorder [Unknown]
